FAERS Safety Report 9496743 (Version 1)
Quarter: 2013Q3

REPORT INFORMATION
  Report Type: Spontaneous
  Country: US (occurrence: None)
  Receive Date: 20130903
  Receipt Date: 20130903
  Transmission Date: 20140515
  Serious: Yes (Other)
  Sender: FDA-Public Use
  Company Number: None

PATIENT
  Age: 25 Year
  Sex: Female
  Weight: 49.9 kg

DRUGS (1)
  1. DICLOFENAC [Suspect]
     Indication: HEADACHE
     Route: 048

REACTIONS (4)
  - Pruritus [None]
  - Erythema [None]
  - Local swelling [None]
  - Urticaria [None]
